FAERS Safety Report 21607484 (Version 1)
Quarter: 2022Q4

REPORT INFORMATION
  Report Type: Report from Study
  Country: US (occurrence: US)
  Receive Date: 20221117
  Receipt Date: 20221117
  Transmission Date: 20230112
  Serious: No
  Sender: FDA-Public Use
  Company Number: US-ABBVIE-4201378

PATIENT
  Sex: Male

DRUGS (1)
  1. IMBRUVICA [Suspect]
     Active Substance: IBRUTINIB
     Indication: Product used for unknown indication
     Route: 048

REACTIONS (6)
  - Immune system disorder [Unknown]
  - Pyrexia [Unknown]
  - Viral infection [Unknown]
  - Platelet count abnormal [Recovered/Resolved]
  - Blood pressure abnormal [Recovered/Resolved]
  - Splenomegaly [Unknown]
